FAERS Safety Report 17762098 (Version 1)
Quarter: 2020Q2

REPORT INFORMATION
  Report Type: Report from Study
  Country: BR (occurrence: BR)
  Receive Date: 20200508
  Receipt Date: 20200508
  Transmission Date: 20200714
  Serious: Yes (Death)
  Sender: FDA-Public Use
  Company Number: NVSC2020BR125261

PATIENT
  Sex: Male

DRUGS (2)
  1. DIOVAN HCT [Suspect]
     Active Substance: HYDROCHLOROTHIAZIDE\VALSARTAN
     Indication: PRODUCT USED FOR UNKNOWN INDICATION
     Dosage: 160/ 12.5 MG (160 MG OF VALSARTAN AND 12.5 MG HYDROCHLOROTHIAZIDE)
     Route: 065
  2. DIOVAN HCT [Suspect]
     Active Substance: HYDROCHLOROTHIAZIDE\VALSARTAN
     Dosage: 80/ 12.5 MG (80 MG OF VALSARTAN AND 12.5 MG HYDROCHLOROTHIAZIDE)
     Route: 065

REACTIONS (1)
  - Death [Fatal]
